FAERS Safety Report 14604592 (Version 1)
Quarter: 2018Q1

REPORT INFORMATION
  Report Type: Spontaneous
  Country: JP (occurrence: JP)
  Receive Date: 20180306
  Receipt Date: 20180306
  Transmission Date: 20180509
  Serious: Yes (Hospitalization, Other)
  Sender: FDA-Public Use
  Company Number: JP-PFIZER INC-2018087345

PATIENT
  Age: 81 Year
  Sex: Male

DRUGS (2)
  1. SEDIEL [Concomitant]
     Active Substance: TANDOSPIRONE
     Dosage: UNK
     Route: 048
  2. ATARAX-P [Suspect]
     Active Substance: HYDROXYZINE HYDROCHLORIDE
     Dosage: UNK
     Route: 048

REACTIONS (2)
  - Acute generalised exanthematous pustulosis [Recovering/Resolving]
  - Psoriasis [Unknown]
